FAERS Safety Report 20874290 (Version 6)
Quarter: 2022Q4

REPORT INFORMATION
  Report Type: Spontaneous
  Country: US (occurrence: US)
  Receive Date: 20220525
  Receipt Date: 20221109
  Transmission Date: 20230112
  Serious: Yes (Hospitalization, Other)
  Sender: FDA-Public Use
  Company Number: US-PFIZER INC-2021800060

PATIENT
  Age: 60 Year
  Sex: Male

DRUGS (2)
  1. XELJANZ [Suspect]
     Active Substance: TOFACITINIB CITRATE
     Dosage: 5 MG
     Dates: start: 20180505
  2. XELJANZ [Suspect]
     Active Substance: TOFACITINIB CITRATE
     Dosage: UNK
     Dates: start: 20190625, end: 20221103

REACTIONS (6)
  - Dyspnoea [Unknown]
  - Hypotension [Unknown]
  - Catheterisation cardiac [Unknown]
  - Macular degeneration [Unknown]
  - Product dose omission issue [Unknown]
  - Vertigo [Unknown]
